FAERS Safety Report 18170733 (Version 1)
Quarter: 2020Q3

REPORT INFORMATION
  Report Type: Report from Study
  Country: None (occurrence: US)
  Receive Date: 20200819
  Receipt Date: 20200819
  Transmission Date: 20201103
  Serious: No
  Sender: FDA-Public Use
  Company Number: US-BIOVITRUM-2020US4366

PATIENT
  Age: 8 Year
  Sex: Female

DRUGS (2)
  1. KINERET [Suspect]
     Active Substance: ANAKINRA
     Indication: FEBRILE INFECTION-RELATED EPILEPSY SYNDROME
  2. KINERET [Suspect]
     Active Substance: ANAKINRA
     Indication: EPILEPSY
     Route: 058
     Dates: start: 20200205

REACTIONS (2)
  - Off label use [Not Recovered/Not Resolved]
  - Rash macular [Unknown]

NARRATIVE: CASE EVENT DATE: 20200205
